FAERS Safety Report 16132724 (Version 3)
Quarter: 2019Q2

REPORT INFORMATION
  Report Type: Spontaneous
  Country: ID (occurrence: ID)
  Receive Date: 20190329
  Receipt Date: 20190517
  Transmission Date: 20190711
  Serious: Yes (Disabling, Other)
  Sender: FDA-Public Use
  Company Number: ID-ASTRAZENECA-2019SE48525

PATIENT
  Age: 50 Year
  Sex: Female

DRUGS (1)
  1. TAGRISSO [Suspect]
     Active Substance: OSIMERTINIB
     Indication: NON-SMALL CELL LUNG CANCER METASTATIC
     Route: 048
     Dates: start: 201712

REACTIONS (3)
  - Therapy partial responder [Unknown]
  - Neuropathy peripheral [Unknown]
  - Deafness unilateral [Unknown]

NARRATIVE: CASE EVENT DATE: 2019
